FAERS Safety Report 5902290-2 (Version None)
Quarter: 2008Q3

REPORT INFORMATION
  Report Type: 
  Country: None (occurrence: None)
  Receive Date: 20080929
  Receipt Date: 20080829
  Transmission Date: 20090109
  Serious: No
  Sender: FDA-Public Use
  Company Number: US-BAUSCH-2008BL003761

PATIENT
  Age: 60 Year
  Sex: Female

DRUGS (2)
  1. ALAWAY [Suspect]
     Indication: BLEPHARITIS
     Route: 047
     Dates: start: 20080808
  2. ALAWAY [Suspect]
     Indication: OFF LABEL USE
     Route: 047
     Dates: start: 20080808

REACTIONS (2)
  - EYE IRRITATION [None]
  - MEDICATION RESIDUE [None]
